FAERS Safety Report 5660466-6 (Version None)
Quarter: 2008Q1

REPORT INFORMATION
  Report Type: 
  Country: None (occurrence: None)
  Receive Date: 20080306
  Receipt Date: 20080222
  Transmission Date: 20080703
  Serious: Yes (Hospitalization)
  Sender: FDA-Public Use
  Company Number: 2007001867

PATIENT
  Age: 69 Year
  Sex: Male
  Weight: 68 kg

DRUGS (11)
  1. TARCEVA [Suspect]
     Indication: NON-SMALL CELL LUNG CANCER
     Dosage: 150 MG (150 MG, 1 IN 1 D), ORAL
     Route: 048
     Dates: start: 20070716, end: 20070913
  2. PEMETREXED (PEMETREXED) [Suspect]
     Dosage: 50 MG/M2 (500 MG, 1 IN 3 WK), INTRAVENOUS
     Route: 042
     Dates: start: 20070716
  3. SALBUTAMOL (SALBUTAMOL) [Concomitant]
  4. TITROPIUM BROMIDE [Concomitant]
  5. FORMOTEROL W/BUDESONIDE (FORMETEROL) [Concomitant]
  6. PERINDOPRIL ERBUMINE [Concomitant]
  7. FUROSEMIDE [Concomitant]
  8. FAMOTIDINE [Concomitant]
  9. FOLIC ACID [Concomitant]
  10. CYANOCOBALAMIN [Concomitant]
  11. DEXAMETHASONE TAB [Concomitant]

REACTIONS (9)
  - ANAEMIA [None]
  - DIARRHOEA HAEMORRHAGIC [None]
  - DUODENAL ULCER [None]
  - DUODENITIS [None]
  - NEOPLASM PROGRESSION [None]
  - NEUTROPENIA [None]
  - REFLUX OESOPHAGITIS [None]
  - THROMBOCYTOPENIA [None]
  - WHITE BLOOD CELL COUNT DECREASED [None]
